FAERS Safety Report 25522997 (Version 2)
Quarter: 2025Q4

REPORT INFORMATION
  Report Type: Spontaneous
  Country: US (occurrence: US)
  Receive Date: 20250707
  Receipt Date: 20251001
  Transmission Date: 20260118
  Serious: Yes (Other)
  Sender: RADIUS PHARM
  Company Number: US-RADIUS HEALTH INC.-US-RADIUS-25050663

PATIENT
  Age: 69 Year
  Sex: Female

DRUGS (1)
  1. TYMLOS [Suspect]
     Active Substance: ABALOPARATIDE
     Indication: Product used for unknown indication
     Dosage: 80 MICROGRAM, QD
     Route: 058

REACTIONS (3)
  - Diabetes mellitus [Unknown]
  - Lung neoplasm [Unknown]
  - Nervousness [Unknown]

NARRATIVE: CASE EVENT DATE: 20241201
